FAERS Safety Report 24057773 (Version 2)
Quarter: 2024Q3

REPORT INFORMATION
  Report Type: Spontaneous
  Country: US (occurrence: US)
  Receive Date: 20240707
  Receipt Date: 20240828
  Transmission Date: 20241017
  Serious: No
  Sender: SANOFI AVENTIS
  Company Number: US-SA-SAC20240702000901

PATIENT
  Age: 37 Year
  Sex: Female

DRUGS (1)
  1. DUPIXENT [Suspect]
     Active Substance: DUPILUMAB
     Indication: Eosinophilic oesophagitis
     Dosage: 300 MG, QW, 300MG EVERY WEEK SUBCUTANEOUS
     Route: 058

REACTIONS (4)
  - Food allergy [Unknown]
  - Injection site inflammation [Unknown]
  - Injection site pain [Unknown]
  - Injection site erythema [Unknown]
